FAERS Safety Report 10314699 (Version 1)
Quarter: 2014Q3

REPORT INFORMATION
  Report Type: Spontaneous
  Country: US (occurrence: None)
  Receive Date: 20140717
  Receipt Date: 20140717
  Transmission Date: 20150326
  Serious: Yes (Other)
  Sender: FDA-Public Use
  Company Number: 2014-US-008483

PATIENT
  Age: 57 Year
  Sex: Female
  Weight: 99.8 kg

DRUGS (3)
  1. XYREM [Suspect]
     Active Substance: SODIUM OXYBATE
     Indication: NARCOLEPSY
     Route: 048
     Dates: start: 201312
  2. NORCO [Suspect]
     Active Substance: ACETAMINOPHEN\HYDROCODONE BITARTRATE
     Indication: ARTHRALGIA
     Route: 048
     Dates: start: 201312
  3. HUMULIN R U500(INSULIN HUMAN, INSULIN HUMAN INJECTION, ISOPHANE) [Concomitant]

REACTIONS (12)
  - Disorientation [None]
  - Arthralgia [None]
  - Accidental exposure to product [None]
  - Wrong drug administered [None]
  - Urinary tract infection [None]
  - Nausea [None]
  - Diarrhoea [None]
  - Retching [None]
  - Sleep paralysis [None]
  - Dehydration [None]
  - Convulsion [None]
  - Blood potassium increased [None]

NARRATIVE: CASE EVENT DATE: 20140706
